FAERS Safety Report 16422782 (Version 4)
Quarter: 2020Q1

REPORT INFORMATION
  Report Type: Spontaneous
  Country: US (occurrence: US)
  Receive Date: 20190612
  Receipt Date: 20200224
  Transmission Date: 20200409
  Serious: No
  Sender: FDA-Public Use
  Company Number: US-SA-2019SA157143

PATIENT
  Age: 52 Year
  Sex: Female

DRUGS (6)
  1. DUPIXENT [Suspect]
     Active Substance: DUPILUMAB
     Indication: DERMATITIS ALLERGIC
     Dosage: 300 MG, QOW
     Route: 058
     Dates: start: 20190322
  2. METHOCARBAMOL. [Concomitant]
     Active Substance: METHOCARBAMOL
  3. DUPIXENT [Suspect]
     Active Substance: DUPILUMAB
     Dosage: 300 MG, QOW
     Route: 058
     Dates: start: 20190416
  4. DOXYCYCLINE MONOHYDRATE [Concomitant]
     Active Substance: DOXYCYCLINE
  5. LEVOTHYROXINE. [Concomitant]
     Active Substance: LEVOTHYROXINE
  6. METHYLPRED [Concomitant]
     Active Substance: METHYLPREDNISOLONE

REACTIONS (5)
  - Eczema [Not Recovered/Not Resolved]
  - Skin warm [Recovered/Resolved]
  - Eyelid disorder [Not Recovered/Not Resolved]
  - Erythema [Recovered/Resolved]
  - Rash [Not Recovered/Not Resolved]

NARRATIVE: CASE EVENT DATE: 20200122
